FAERS Safety Report 8918279 (Version 1)
Quarter: 2012Q4

REPORT INFORMATION
  Report Type: 
  Country: US (occurrence: US)
  Receive Date: 20121120
  Receipt Date: 20121120
  Transmission Date: 20130627
  Serious: No
  Sender: FDA-Public Use
  Company Number: US-ASTRAZENECA-2012SE25385

PATIENT
  Age: 69 Year
  Sex: Female
  Weight: 62.6 kg

DRUGS (8)
  1. NEXIUM [Suspect]
     Indication: GASTROOESOPHAGEAL REFLUX DISEASE
     Dosage: 40 MG PRN
     Route: 048
     Dates: start: 2003
  2. NEXIUM [Suspect]
     Indication: GASTROOESOPHAGEAL REFLUX DISEASE
     Route: 048
  3. NEXIUM [Suspect]
     Indication: GASTROOESOPHAGEAL REFLUX DISEASE
     Route: 048
  4. CALCIUM (LOW DOSES) [Concomitant]
  5. LIPITOR [Concomitant]
  6. NASOCORT AQ [Concomitant]
  7. GENERIC TYLENOL [Concomitant]
     Indication: ARTHRALGIA
  8. ALLEGRA GENERIC [Concomitant]

REACTIONS (6)
  - Osteoporosis [Unknown]
  - Osteoarthritis [Unknown]
  - Gastrooesophageal reflux disease [Unknown]
  - Intentional drug misuse [Unknown]
  - Intentional drug misuse [Unknown]
  - Off label use [Unknown]
